FAERS Safety Report 8491577-8 (Version None)
Quarter: 2012Q3

REPORT INFORMATION
  Report Type: 
  Country: None (occurrence: None)
  Receive Date: 20120706
  Receipt Date: 20120629
  Transmission Date: 20120928
  Serious: Yes (Hospitalization)
  Sender: FDA-Public Use
  Company Number: US-UCBSA-043276

PATIENT
  Age: 52 Year
  Sex: Male
  Weight: 118 kg

DRUGS (26)
  1. ACETAMINOPHEN [Concomitant]
     Indication: CROHN'S DISEASE
  2. GLARGINE [Concomitant]
     Dosage: 10 UNITS EVERY DAY
  3. VITOZA [Concomitant]
  4. CIMZIA [Suspect]
     Indication: CROHN'S DISEASE
     Route: 058
     Dates: start: 20110111, end: 20110924
  5. PREDNISONE TAB [Concomitant]
     Dosage: DAILY DOSE: 10 MG
     Route: 048
     Dates: start: 20080201, end: 20111004
  6. CALCIUM OXALATE [Concomitant]
     Indication: HYPERPHOSPHATAEMIA
  7. CIMZIA [Suspect]
     Route: 058
     Dates: start: 20100428, end: 20100526
  8. CALCIUM CARBONATE [Concomitant]
  9. GLARGINE [Concomitant]
     Dosage: 12 UNITS EVERY DAY
  10. HYDRALAZINE HYDROCHLORIDE [Concomitant]
  11. FUROSEMIDE [Concomitant]
  12. PREDNISONE TAB [Concomitant]
     Indication: CROHN'S DISEASE
     Dates: start: 20111001
  13. NOVOLOG [Concomitant]
     Dosage: 1 UNIT
  14. POTASSIUM [Concomitant]
     Route: 048
  15. AVANDARYL [Concomitant]
     Dosage: 4 MG - 1 MG
  16. CIMZIA [Suspect]
     Route: 058
     Dates: start: 20100609, end: 20100915
  17. CALCIUM ACETATE [Concomitant]
  18. LEVEMIR [Concomitant]
     Dosage: 10 U
  19. TRILIPIX [Concomitant]
  20. NEURONTIN [Concomitant]
  21. CUBICIN [Concomitant]
     Dosage: 720 MG QD TO 11/7
     Route: 042
  22. PREDNISONE TAB [Concomitant]
     Dosage: 60 MG
     Route: 048
     Dates: start: 20110101, end: 20110101
  23. OXYCODONE HCL [Concomitant]
  24. FLONASE [Concomitant]
  25. RENAGEL [Concomitant]
  26. METOPROLOL [Concomitant]

REACTIONS (1)
  - SEPSIS [None]
